FAERS Safety Report 10761337 (Version 8)
Quarter: 2022Q2

REPORT INFORMATION
  Report Type: Spontaneous
  Country: US (occurrence: US)
  Receive Date: 20150204
  Receipt Date: 20220428
  Transmission Date: 20220720
  Serious: No
  Sender: FDA-Public Use
  Company Number: US-PFIZER INC-2015044002

PATIENT
  Age: 49 Year
  Sex: Female

DRUGS (2)
  1. NEOSPORIN [Suspect]
     Active Substance: BACITRACIN ZINC\NEOMYCIN SULFATE\POLYMYXIN B SULFATE
     Dosage: UNK
  2. MICONAZOLE NITRATE [Suspect]
     Active Substance: MICONAZOLE NITRATE
     Dosage: UNK

REACTIONS (1)
  - Drug hypersensitivity [Unknown]
